FAERS Safety Report 7523564-8 (Version None)
Quarter: 2011Q2

REPORT INFORMATION
  Report Type: 
  Country: None (occurrence: None)
  Receive Date: 20110601
  Receipt Date: 20110601
  Transmission Date: 20111010
  Serious: Yes (Other)
  Sender: FDA-Public Use
  Company Number: None

PATIENT
  Age: 58 Year
  Sex: Female
  Weight: 61.2356 kg

DRUGS (1)
  1. ANASTROZOLE [Suspect]
     Indication: BREAST CANCER
     Dosage: 1 DAILY PO
     Route: 048
     Dates: start: 20101101, end: 20110426

REACTIONS (3)
  - ARTHRALGIA [None]
  - VASOSPASM [None]
  - CONSTIPATION [None]
